FAERS Safety Report 8477191-9 (Version None)
Quarter: 2012Q2

REPORT INFORMATION
  Report Type: 
  Country: None (occurrence: None)
  Receive Date: 20120625
  Receipt Date: 20120625
  Transmission Date: 20120825
  Serious: Yes (Life-Threatening, Hospitalization, Other)
  Sender: FDA-Public Use
  Company Number: None

PATIENT
  Age: 79 Year
  Sex: Male
  Weight: 86.1834 kg

DRUGS (1)
  1. ZOLPIDEM TARTRATE [Suspect]
     Indication: INSOMNIA
     Dosage: 1/4 TABLET  SEVERAL YEARS OCCASIONALL

REACTIONS (7)
  - HAEMORRHAGE [None]
  - VOMITING [None]
  - DEPRESSED LEVEL OF CONSCIOUSNESS [None]
  - SOMNAMBULISM [None]
  - NEURALGIA [None]
  - CONCUSSION [None]
  - CERVICAL VERTEBRAL FRACTURE [None]
